FAERS Safety Report 4357137-5 (Version None)
Quarter: 2004Q2

REPORT INFORMATION
  Report Type: 
  Country: None (occurrence: None)
  Receive Date: 20040511
  Receipt Date: 20040416
  Transmission Date: 20050107
  Serious: Yes (Life-Threatening)
  Sender: FDA-Public Use
  Company Number: EWC040438897

PATIENT
  Age: 11 Week
  Sex: Female

DRUGS (5)
  1. FLUOXETINE [Suspect]
     Indication: DEPRESSION
     Dosage: 20 MG/1
     Dates: start: 20021114, end: 20040318
  2. MAXALT [Concomitant]
  3. LEVAXIN (LEVOTHYROXINE SODIUM) [Concomitant]
  4. SOMADRIL (CARISOPRODOL) [Concomitant]
  5. SOBRIL (OXAZEPAM) [Concomitant]

REACTIONS (1)
  - DRUG TOXICITY [None]
